FAERS Safety Report 19646170 (Version 13)
Quarter: 2022Q2

REPORT INFORMATION
  Report Type: Spontaneous
  Country: US (occurrence: US)
  Receive Date: 20210802
  Receipt Date: 20220602
  Transmission Date: 20220721
  Serious: Yes (Hospitalization, Other)
  Sender: FDA-Public Use
  Company Number: US-GSKCCFUS-CASE-01119079_AE-65903

PATIENT

DRUGS (5)
  1. NUCALA [Suspect]
     Active Substance: MEPOLIZUMAB
     Indication: Asthma
     Dosage: 100 MG/ML
     Dates: start: 202101
  2. NUCALA [Suspect]
     Active Substance: MEPOLIZUMAB
     Indication: Nasal polyps
  3. ADVAIR DISKUS [Suspect]
     Active Substance: FLUTICASONE PROPIONATE\SALMETEROL XINAFOATE
     Indication: Product used for unknown indication
     Dosage: UNK, BID, 500/50 MCG
  4. NUCALA [Suspect]
     Active Substance: MEPOLIZUMAB
     Indication: Asthma
     Dosage: 100 MG
     Dates: start: 20210501
  5. PREDNISONE [Suspect]
     Active Substance: PREDNISONE
     Indication: Product used for unknown indication
     Dosage: UNK

REACTIONS (16)
  - Respiratory failure [Recovered/Resolved]
  - Asthma [Not Recovered/Not Resolved]
  - Wheezing [Not Recovered/Not Resolved]
  - Sinus disorder [Unknown]
  - Dyspnoea [Not Recovered/Not Resolved]
  - Blood cholesterol abnormal [Unknown]
  - Oxygen saturation decreased [Unknown]
  - Back pain [Unknown]
  - Pain [Unknown]
  - Abdominal pain upper [Unknown]
  - Heart rate abnormal [Unknown]
  - Chest discomfort [Not Recovered/Not Resolved]
  - Abdominal pain lower [Unknown]
  - Rash [Not Recovered/Not Resolved]
  - Drug ineffective [Unknown]
  - Product dose omission issue [Unknown]

NARRATIVE: CASE EVENT DATE: 20210101
